FAERS Safety Report 17967687 (Version 4)
Quarter: 2020Q4

REPORT INFORMATION
  Report Type: Spontaneous
  Country: US (occurrence: US)
  Receive Date: 20200701
  Receipt Date: 20201216
  Transmission Date: 20210113
  Serious: No
  Sender: FDA-Public Use
  Company Number: US-PFIZER INC-2020252285

PATIENT
  Age: 56 Year
  Sex: Female

DRUGS (2)
  1. PREGABALIN. [Suspect]
     Active Substance: PREGABALIN
     Dosage: 150 MG, FOUR TIMES DAILY
     Route: 048
  2. PREGABALIN. [Suspect]
     Active Substance: PREGABALIN
     Indication: COMPLEX REGIONAL PAIN SYNDROME
     Dosage: UNK

REACTIONS (3)
  - Pain [Unknown]
  - Off label use [Unknown]
  - Therapeutic product effect incomplete [Unknown]
